FAERS Safety Report 7368836-5 (Version None)
Quarter: 2011Q1

REPORT INFORMATION
  Report Type: 
  Country: None (occurrence: None)
  Receive Date: 20110310
  Receipt Date: 20110304
  Transmission Date: 20110831
  Serious: Yes (Hospitalization)
  Sender: FDA-Public Use
  Company Number: 2010SP006063

PATIENT
  Age: 40 Year
  Sex: Female
  Weight: 81.6475 kg

DRUGS (14)
  1. VALIUM [Concomitant]
  2. TUSSIONEX [Concomitant]
  3. KEPPRA [Concomitant]
  4. BACTRIM DS [Concomitant]
  5. HYDROCHLOROTHIAZIDE [Concomitant]
  6. FLAGYL [Concomitant]
  7. FLONASE [Concomitant]
  8. NUVARING [Suspect]
     Indication: UTERINE LEIOMYOMA
     Dates: start: 20071201, end: 20080622
  9. DIFLUCAN [Concomitant]
  10. ANAPROX DS [Concomitant]
  11. IBUPROFEN [Concomitant]
  12. BENAZEPRIL HYDROCHLORIDE AND HYDROCHLOROTHIAZIDE [Concomitant]
  13. SINGULAIR [Concomitant]
  14. CYMBALTA [Concomitant]

REACTIONS (3)
  - PULMONARY EMBOLISM [None]
  - CYSTITIS [None]
  - VULVOVAGINAL MYCOTIC INFECTION [None]
